FAERS Safety Report 19766075 (Version 1)
Quarter: 2021Q3

REPORT INFORMATION
  Report Type: Spontaneous
  Country: US (occurrence: US)
  Receive Date: 20210831
  Receipt Date: 20210831
  Transmission Date: 20211014
  Serious: No
  Sender: FDA-Public Use
  Company Number: US-VISTAPHARM, INC.-VER202107-001605

PATIENT
  Age: 41 Year
  Sex: Female
  Weight: 138.79 kg

DRUGS (1)
  1. MYCOPHENOLATE MOFETIL ORAL SUSPENSION, USP  200 MG/ML [Suspect]
     Active Substance: MYCOPHENOLATE MOFETIL
     Indication: SCLERODERMA
     Dosage: 7.5 ML (MORNING AND EVENING)
     Route: 048
     Dates: start: 20210602

REACTIONS (5)
  - Dysgeusia [Unknown]
  - Nausea [Unknown]
  - Retching [Unknown]
  - Vomiting [Unknown]
  - Product use in unapproved indication [Unknown]

NARRATIVE: CASE EVENT DATE: 20210602
